FAERS Safety Report 7501853-0 (Version None)
Quarter: 2011Q2

REPORT INFORMATION
  Report Type: 
  Country: None (occurrence: None)
  Receive Date: 20110525
  Receipt Date: 20110510
  Transmission Date: 20111010
  Serious: Yes (Hospitalization, Other)
  Sender: FDA-Public Use
  Company Number: US-BAYER-201038523NA

PATIENT
  Sex: Female
  Weight: 39.456 kg

DRUGS (2)
  1. DROSPIRENONE AND ETHINYL ESTRADIOL [Suspect]
     Indication: CONTRACEPTION
     Dosage: UNK UNK, QD
     Dates: start: 20100201, end: 20100301
  2. YASMIN [Suspect]
     Indication: CONTRACEPTION
     Dosage: UNK UNK, QD
     Route: 004
     Dates: start: 20070101, end: 20071101

REACTIONS (3)
  - GASTRIC DISORDER [None]
  - ABDOMINAL DISCOMFORT [None]
  - CHOLELITHIASIS [None]
